FAERS Safety Report 22267888 (Version 2)
Quarter: 2023Q2

REPORT INFORMATION
  Report Type: Spontaneous
  Country: US (occurrence: US)
  Receive Date: 20230430
  Receipt Date: 20230501
  Transmission Date: 20230721
  Serious: No
  Sender: FDA-Public Use
  Company Number: US-002147023-NVSC2023US094380

PATIENT
  Age: 47 Year
  Sex: Female
  Weight: 61.678 kg

DRUGS (1)
  1. LEQVIO [Suspect]
     Active Substance: INCLISIRAN SODIUM
     Indication: Type IIa hyperlipidaemia
     Dosage: 284 MG, DAY 1, 90 DAY, + EVERY SIX MONTHS THEREAFTE
     Route: 058
     Dates: start: 20230424

REACTIONS (1)
  - Injection site pain [Unknown]

NARRATIVE: CASE EVENT DATE: 20230424
